FAERS Safety Report 7405541-0 (Version None)
Quarter: 2011Q2

REPORT INFORMATION
  Report Type: 
  Country: None (occurrence: None)
  Receive Date: 20110411
  Receipt Date: 20110401
  Transmission Date: 20111010
  Serious: Yes (Disabling, Other)
  Sender: FDA-Public Use
  Company Number: US-SANOFI-AVENTIS-2011SA020768

PATIENT
  Age: 70 Year
  Sex: Male
  Weight: 106.5 kg

DRUGS (37)
  1. ADVIL LIQUI-GELS [Suspect]
     Indication: BACK PAIN
     Route: 065
     Dates: end: 20100101
  2. DIGOXIN [Concomitant]
  3. OXYCODONE [Concomitant]
  4. PILOCARPINE [Concomitant]
  5. XALATAN [Suspect]
     Route: 065
  6. PROSCAR [Suspect]
     Route: 065
  7. CYCLOSPORINE [Suspect]
     Route: 065
  8. COREG [Suspect]
     Route: 065
  9. LANTUS [Concomitant]
  10. LUMIGAN [Concomitant]
  11. DIAZEPAM [Concomitant]
  12. BILBERRY [Concomitant]
  13. PLAVIX [Suspect]
     Route: 065
  14. FUROSEMIDE [Concomitant]
  15. ARTIFICIAL TEARS [Concomitant]
  16. LIPITOR [Suspect]
     Route: 065
  17. ADVIL LIQUI-GELS [Suspect]
     Route: 065
     Dates: start: 20110301, end: 20110301
  18. METFORMIN [Suspect]
     Indication: DIABETES MELLITUS
     Route: 065
     Dates: start: 20101018
  19. ZOCOR [Suspect]
     Route: 065
  20. TOPROL-XL [Suspect]
     Route: 065
  21. REGLAN [Suspect]
     Route: 065
  22. PROZAC [Suspect]
     Route: 065
  23. ACETYLSALICYLIC ACID SRT [Concomitant]
  24. ALLOPURINOL [Concomitant]
  25. POTASSIUM CHLORIDE [Concomitant]
  26. TIMOLOL [Concomitant]
  27. ZETIA [Suspect]
     Route: 065
  28. VICODIN [Concomitant]
  29. FISH OIL [Concomitant]
  30. ALPRAZOLAM [Suspect]
     Route: 065
  31. LOSARTAN [Concomitant]
  32. PRAVASTATIN [Concomitant]
  33. CLOZAPINE [Concomitant]
  34. FOLIC ACID [Concomitant]
  35. TRAMADOL [Suspect]
     Route: 065
  36. LOTRIMIN [Suspect]
     Route: 065
  37. LUVOX [Suspect]
     Route: 065

REACTIONS (10)
  - SLEEP DISORDER [None]
  - VOMITING [None]
  - CHEST DISCOMFORT [None]
  - NAUSEA [None]
  - MYALGIA [None]
  - ARTHROPATHY [None]
  - DYSPNOEA [None]
  - BACK PAIN [None]
  - ASTHENIA [None]
  - ABASIA [None]
